FAERS Safety Report 7376638-9 (Version None)
Quarter: 2011Q1

REPORT INFORMATION
  Report Type: 
  Country: None (occurrence: None)
  Receive Date: 20110325
  Receipt Date: 20110318
  Transmission Date: 20110831
  Serious: Yes (Hospitalization)
  Sender: FDA-Public Use
  Company Number: FR-ASTRAZENECA-2011SE15794

PATIENT
  Age: 51 Year
  Sex: Male

DRUGS (35)
  1. TAZOCILLIN [Suspect]
     Route: 042
     Dates: start: 20101029, end: 20101105
  2. SEROPRAM [Suspect]
     Route: 048
     Dates: start: 20101001, end: 20101114
  3. METHOTREXATE [Concomitant]
     Dates: start: 20101008
  4. VANCOMYCIN [Concomitant]
     Dates: start: 20101026, end: 20101027
  5. OXYNORM [Concomitant]
     Dates: start: 20101031, end: 20101114
  6. ACUPAN [Concomitant]
     Dosage: 2 TO 6 VIALS PER DAY ON 30, 31-OCT AND ON 06-NOV-2010
  7. PRIMPERAN TAB [Concomitant]
     Dosage: 1 VIAL THREE TIMES PER DAY
     Dates: start: 20101024, end: 20101118
  8. ZOVIRAX [Suspect]
     Indication: INFECTION PROPHYLAXIS
     Route: 042
     Dates: start: 20101021, end: 20101112
  9. MELPHALAN [Concomitant]
     Dates: start: 20101026
  10. CONTRAMAL [Concomitant]
     Dosage: 1 VIAL
     Dates: start: 20101105
  11. MOPRAL [Suspect]
     Route: 048
     Dates: start: 20101001, end: 20101104
  12. MOPRAL [Suspect]
     Route: 048
     Dates: start: 20101105, end: 20101115
  13. TRIFLUCAN [Suspect]
     Indication: INFECTION PROPHYLAXIS
     Route: 048
     Dates: start: 20101008, end: 20101108
  14. ZELITREX [Concomitant]
     Route: 048
     Dates: start: 20101112
  15. NEORECORMON [Concomitant]
     Dates: start: 20101011
  16. DECONTA [Concomitant]
     Dates: start: 20101025, end: 20101119
  17. AMBISOME [Suspect]
     Route: 042
     Dates: start: 20101109, end: 20101113
  18. ZOPHREN [Suspect]
     Indication: PREMEDICATION
     Dosage: 3 VIALS PER DAY
     Route: 042
     Dates: start: 20101008, end: 20101101
  19. HEPARIN SODIUM [Concomitant]
     Route: 042
     Dates: start: 20101021, end: 20101119
  20. GELOX [Concomitant]
     Dates: start: 20101021, end: 20101114
  21. MYCOSTATIN [Concomitant]
     Dates: start: 20101021, end: 20101114
  22. TARGOCID [Suspect]
     Dosage: 400 MG TWICE PER DAY AND THEN 400 MG ONE PER DAY
     Route: 042
     Dates: start: 20101029, end: 20101113
  23. FOLINORAL [Concomitant]
     Dates: start: 20101009, end: 20101011
  24. CHIBROCADRON [Concomitant]
     Dates: start: 20101012, end: 20101027
  25. POLARAMINE [Concomitant]
     Dosage: 1 VIAL PER DAY
     Dates: start: 20101024, end: 20101029
  26. EMEND [Concomitant]
     Dosage: 125 MG AND THEN 80 MG PER DAY
     Dates: start: 20101026, end: 20101030
  27. BICNU [Concomitant]
     Dosage: 300 MG PER M2
     Dates: start: 20101021
  28. CYTARABINE [Concomitant]
     Dates: start: 20101022, end: 20101025
  29. ETOPOPHOS PRESERVATIVE FREE [Concomitant]
     Dates: start: 20101022, end: 20101025
  30. COLIMYCIN [Concomitant]
     Dates: start: 20101106, end: 20101115
  31. TIENAM [Suspect]
     Route: 042
     Dates: start: 20101105, end: 20101110
  32. ZELITREX [Concomitant]
     Indication: INFECTION PROPHYLAXIS
     Route: 048
     Dates: start: 20101007, end: 20101011
  33. AMIKLIN [Concomitant]
     Dates: start: 20101105
  34. CIFLOX [Suspect]
     Route: 042
     Dates: start: 20101029, end: 20101110
  35. SPASFON [Concomitant]
     Dosage: 2 TO 6 VIALS PER DAY
     Dates: start: 20101105, end: 20101112

REACTIONS (2)
  - CYTOLYTIC HEPATITIS [None]
  - CHOLESTASIS [None]
